FAERS Safety Report 24418002 (Version 2)
Quarter: 2024Q4

REPORT INFORMATION
  Report Type: Spontaneous
  Country: US (occurrence: US)
  Receive Date: 20241009
  Receipt Date: 20241016
  Transmission Date: 20250115
  Serious: No
  Sender: MYLAN
  Company Number: US-MYLANLABS-2024M1090820

PATIENT
  Sex: Female
  Weight: 72.57 kg

DRUGS (1)
  1. NORVASC [Suspect]
     Active Substance: AMLODIPINE BESYLATE
     Indication: Blood pressure abnormal
     Dosage: 10 MILLIGRAM, QD (1 TABLET DAILY)
     Route: 048
     Dates: start: 20241001

REACTIONS (1)
  - Drug ineffective [Unknown]
